FAERS Safety Report 5212944-1 (Version None)
Quarter: 2007Q1

REPORT INFORMATION
  Report Type: 
  Country: None (occurrence: None)
  Receive Date: 20070117
  Receipt Date: 20061204
  Transmission Date: 20070707
  Serious: Yes (Other)
  Sender: FDA-Public Use
  Company Number: 2006SP007909

PATIENT
  Age: 4 Year
  Sex: Female

DRUGS (3)
  1. TEMOZOLOMIDE (S-P) (150 MG/M2) [Suspect]
     Indication: NEUROBLASTOMA
     Dosage: 150 MG/M2; PO
     Route: 048
  2. IRINOTECAN [Suspect]
     Indication: NEUROBLASTOMA
     Dosage: 50 MG;M2;TIW;IV
     Route: 042
  3. CYCLOPHOSPHAMIDE [Suspect]
     Dosage: 140 MG/KG

REACTIONS (2)
  - CYTOMEGALOVIRUS INFECTION [None]
  - VIRAEMIA [None]
